FAERS Safety Report 6293156-X (Version None)
Quarter: 2009Q3

REPORT INFORMATION
  Report Type: 
  Country: None (occurrence: None)
  Receive Date: 20090731
  Receipt Date: 20090730
  Transmission Date: 20100115
  Serious: Yes (Hospitalization)
  Sender: FDA-Public Use
  Company Number: US-B.I. PHARMACEUTICALS,INC./RIDGEFIELD-2009-BP-08261BP

PATIENT
  Sex: Female

DRUGS (12)
  1. SPIRIVA [Suspect]
     Indication: BRONCHITIS CHRONIC
     Dosage: 18 MCG
     Route: 055
     Dates: start: 20070101
  2. SPIRIVA [Suspect]
     Indication: DYSPNOEA
  3. DURAGESIC-100 [Concomitant]
     Indication: BACK PAIN
     Route: 061
     Dates: start: 19990101
  4. TOPAMAX [Concomitant]
     Indication: MIGRAINE
     Dosage: 100 MG
     Dates: start: 20040101
  5. ALBUTEROL [Concomitant]
  6. CLORAZ DIPOT (TRANZENE) [Concomitant]
  7. OPANA [Concomitant]
     Dosage: 20 MG
  8. LEXAPRO [Concomitant]
     Dosage: 5 MG
  9. NEXIUM [Concomitant]
     Dosage: 40 MG
  10. ZOMIG [Concomitant]
  11. PROVIGIL [Concomitant]
     Dosage: 400 MG
  12. VERICARE [Concomitant]
     Dosage: 5 MG

REACTIONS (4)
  - DRUG INEFFECTIVE [None]
  - GAIT DISTURBANCE [None]
  - INTERVERTEBRAL DISC DISORDER [None]
  - NECK PAIN [None]
